FAERS Safety Report 22058745 (Version 4)
Quarter: 2023Q4

REPORT INFORMATION
  Report Type: Spontaneous
  Country: CN (occurrence: None)
  Receive Date: 20230303
  Receipt Date: 20231227
  Transmission Date: 20240109
  Serious: Yes (Other)
  Sender: FDA-Public Use
  Company Number: CN-ROCHE-3297525

PATIENT
  Age: 69 Year
  Sex: Male

DRUGS (29)
  1. OBINUTUZUMAB [Suspect]
     Active Substance: OBINUTUZUMAB
     Indication: Diffuse large B-cell lymphoma
     Dosage: D0
     Route: 042
     Dates: start: 20221125
  2. OBINUTUZUMAB [Suspect]
     Active Substance: OBINUTUZUMAB
     Dosage: D0
     Route: 042
     Dates: start: 20230131
  3. POLIVY [Suspect]
     Active Substance: POLATUZUMAB VEDOTIN-PIIQ
     Indication: Diffuse large B-cell lymphoma
     Dosage: POLA + BR + BTK, D2
     Route: 065
     Dates: start: 20230427
  4. POLIVY [Suspect]
     Active Substance: POLATUZUMAB VEDOTIN-PIIQ
     Dosage: POLA + BR
     Route: 065
     Dates: start: 20230606
  5. POLIVY [Suspect]
     Active Substance: POLATUZUMAB VEDOTIN-PIIQ
     Dosage: POLA+BR, D2
     Route: 065
     Dates: start: 20230714
  6. POLIVY [Suspect]
     Active Substance: POLATUZUMAB VEDOTIN-PIIQ
     Dosage: POLA+BR, D2
     Route: 065
     Dates: start: 20231023
  7. LENALIDOMIDE [Concomitant]
     Active Substance: LENALIDOMIDE
     Indication: Diffuse large B-cell lymphoma
     Dosage: D1-D21,29/JUL/2022, 03/SEP/2022
  8. OXALIPLATIN [Concomitant]
     Active Substance: OXALIPLATIN
     Indication: Diffuse large B-cell lymphoma
     Dosage: D1, 15
     Dates: start: 20221125
  9. OXALIPLATIN [Concomitant]
     Active Substance: OXALIPLATIN
     Dates: start: 20230106
  10. ZANUBRUTINIB [Concomitant]
     Active Substance: ZANUBRUTINIB
     Indication: Diffuse large B-cell lymphoma
     Dates: start: 20230225
  11. ZANUBRUTINIB [Concomitant]
     Active Substance: ZANUBRUTINIB
     Dates: start: 20230304
  12. ZANUBRUTINIB [Concomitant]
     Active Substance: ZANUBRUTINIB
     Dates: start: 20230324
  13. ZANUBRUTINIB [Concomitant]
     Active Substance: ZANUBRUTINIB
     Dosage: POLA + BR + BTK
     Dates: start: 20230427
  14. BENDAMUSTINE [Concomitant]
     Active Substance: BENDAMUSTINE
     Indication: Diffuse large B-cell lymphoma
     Dosage: ZANUBRUTINIB + BR, D1, 2
     Dates: start: 20230304
  15. BENDAMUSTINE [Concomitant]
     Active Substance: BENDAMUSTINE
     Dosage: POLA + BR + BTK , D1, 2
     Dates: start: 20230427
  16. BENDAMUSTINE [Concomitant]
     Active Substance: BENDAMUSTINE
     Dosage: POLA + BR
     Dates: start: 20230606
  17. CYTARABINE [Concomitant]
     Active Substance: CYTARABINE
     Indication: Diffuse large B-cell lymphoma
     Dosage: D2
     Route: 065
     Dates: start: 20230131
  18. DEXAMETHASONE [Concomitant]
     Active Substance: DEXAMETHASONE
     Indication: Diffuse large B-cell lymphoma
     Dosage: D1-D4
     Dates: start: 20221024
  19. DEXAMETHASONE [Concomitant]
     Active Substance: DEXAMETHASONE
     Dosage: D1-D4
     Dates: start: 20230131
  20. CISPLATIN [Concomitant]
     Active Substance: CISPLATIN
     Indication: Diffuse large B-cell lymphoma
     Dosage: D1
     Dates: start: 20221024
  21. CISPLATIN [Concomitant]
     Active Substance: CISPLATIN
     Dosage: D1
     Dates: start: 20230131
  22. GEMCITABINE [Concomitant]
     Active Substance: GEMCITABINE
     Indication: Diffuse large B-cell lymphoma
     Dosage: D1,D8
     Dates: start: 20221024
  23. GEMCITABINE [Concomitant]
     Active Substance: GEMCITABINE
     Dosage: D1, D15
     Dates: start: 20221125
  24. GEMCITABINE [Concomitant]
     Active Substance: GEMCITABINE
     Dates: start: 20230106
  25. RITUXIMAB [Concomitant]
     Active Substance: RITUXIMAB
     Indication: Diffuse large B-cell lymphoma
     Dosage: D0, 29-JUL-2022, 04-SEP-2022
  26. RITUXIMAB [Concomitant]
     Active Substance: RITUXIMAB
     Dosage: D0
     Dates: start: 20221024
  27. RITUXIMAB [Concomitant]
     Active Substance: RITUXIMAB
     Dosage: ZANUBRUTINIB + BR, DAY 0
     Dates: start: 20230304
  28. RITUXIMAB [Concomitant]
     Active Substance: RITUXIMAB
     Dosage: D1, POLA + BR + BTK
     Dates: start: 20230427
  29. RITUXIMAB [Concomitant]
     Active Substance: RITUXIMAB
     Dosage: POLA + BR
     Dates: start: 20230606

REACTIONS (3)
  - Myelosuppression [Unknown]
  - Off label use [Unknown]
  - COVID-19 pneumonia [Unknown]
